FAERS Safety Report 6906177-8 (Version None)
Quarter: 2010Q3

REPORT INFORMATION
  Report Type: 
  Country: None (occurrence: None)
  Receive Date: 20100804
  Receipt Date: 20100729
  Transmission Date: 20110219
  Serious: Yes (Death)
  Sender: FDA-Public Use
  Company Number: PH-MERCK-1006PHL00019

PATIENT
  Age: 36 Year
  Sex: Male

DRUGS (1)
  1. PRIMAXIN [Suspect]
     Route: 042
     Dates: start: 20100606

REACTIONS (3)
  - HAEMORRHAGE INTRACRANIAL [None]
  - LIQUID PRODUCT PHYSICAL ISSUE [None]
  - MEDICATION ERROR [None]
